FAERS Safety Report 4452443-8 (Version None)
Quarter: 2004Q3

REPORT INFORMATION
  Report Type: 
  Country: None (occurrence: None)
  Receive Date: 20040917
  Receipt Date: 20040909
  Transmission Date: 20050211
  Serious: Yes (Other)
  Sender: FDA-Public Use
  Company Number: PHNU2004DE03189

PATIENT
  Sex: Male

DRUGS (2)
  1. BRISERIN [Suspect]
     Indication: HYPERTENSION
     Dates: start: 19840101, end: 19940101
  2. BRISERIN-N [Suspect]
     Indication: HYPERTENSION
     Route: 048
     Dates: start: 19940101, end: 20040901

REACTIONS (3)
  - DEMENTIA [None]
  - HALLUCINATION [None]
  - SENILE DEMENTIA [None]
